FAERS Safety Report 6725706-0 (Version None)
Quarter: 2010Q2

REPORT INFORMATION
  Report Type: 
  Country: None (occurrence: None)
  Receive Date: 20100512
  Receipt Date: 20100428
  Transmission Date: 20101027
  Serious: Yes (Death)
  Sender: FDA-Public Use
  Company Number: ESP10000054

PATIENT
  Age: 73 Year
  Sex: Female
  Weight: 75 kg

DRUGS (10)
  1. ACTONEL [Suspect]
     Indication: OSTEOPOROSIS
     Dosage: 35 MG, 1/WEEK, ORAL
     Route: 048
     Dates: start: 20040218, end: 20080421
  2. ATACAND [Concomitant]
  3. LESCOL [Concomitant]
  4. EZETROL (EZETIMIBRE) [Concomitant]
  5. CONDROSULF (CHONDROITIN SULFATE SODIUM) [Concomitant]
  6. ATACAND HCT [Concomitant]
  7. ACETAMINOPHEN [Concomitant]
  8. ANTIINFLAMMATORY AGENTS, NON-STEROIDS [Concomitant]
  9. OMEPRAZOLE [Concomitant]
  10. XICIL (GLUCOSAMINE SULFATE) [Concomitant]

REACTIONS (1)
  - GASTRIC CANCER [None]
